FAERS Safety Report 24115969 (Version 2)
Quarter: 2024Q3

REPORT INFORMATION
  Report Type: Spontaneous
  Country: AR (occurrence: AR)
  Receive Date: 20240722
  Receipt Date: 20240726
  Transmission Date: 20241017
  Serious: Yes (Other)
  Sender: CHATTEM
  Company Number: AR-OPELLA-2024OHG024202

PATIENT
  Age: 55 Year
  Sex: Female

DRUGS (1)
  1. DULCOLAX STIMULANT LAXATIVE [Suspect]
     Active Substance: BISACODYL
     Indication: Constipation
     Dosage: FREQUENCY APPROXIMATELY EVERY 12/14 DAYS
     Route: 048
     Dates: start: 20240513

REACTIONS (9)
  - Loss of consciousness [Recovered/Resolved]
  - Pain [Recovered/Resolved]
  - Asthenia [Recovering/Resolving]
  - Tremor [Recovering/Resolving]
  - Fall [Recovering/Resolving]
  - Dyschezia [Recovered/Resolved]
  - Amnesia [Unknown]
  - Hypotension [Unknown]
  - Therapeutic product effect variable [Unknown]

NARRATIVE: CASE EVENT DATE: 20240715
